FAERS Safety Report 23958066 (Version 1)
Quarter: 2024Q2

REPORT INFORMATION
  Report Type: Spontaneous
  Country: BE (occurrence: None)
  Receive Date: 20240610
  Receipt Date: 20240610
  Transmission Date: 20240715
  Serious: Yes (Other)
  Sender: FDA-Public Use
  Company Number: 2024A128585

PATIENT
  Age: 81 Year
  Sex: Female

DRUGS (6)
  1. DURVALUMAB [Suspect]
     Active Substance: DURVALUMAB
     Indication: Lung neoplasm malignant
     Route: 042
  2. CAPMATINIB [Concomitant]
     Active Substance: CAPMATINIB
     Dates: start: 202207
  3. CAPMATINIB [Concomitant]
     Active Substance: CAPMATINIB
  4. CAPMATINIB [Concomitant]
     Active Substance: CAPMATINIB
     Dates: start: 202209
  5. TEPOTINIB [Concomitant]
     Active Substance: TEPOTINIB
     Dates: start: 202211
  6. TEPOTINIB [Concomitant]
     Active Substance: TEPOTINIB
     Dates: start: 202211

REACTIONS (2)
  - Malignant neoplasm progression [Unknown]
  - Gene mutation [Unknown]
